FAERS Safety Report 8964468 (Version 1)
Quarter: 2012Q4

REPORT INFORMATION
  Report Type: 
  Country: US (occurrence: US)
  Receive Date: 20121214
  Receipt Date: 20121214
  Transmission Date: 20130627
  Serious: No
  Sender: FDA-Public Use
  Company Number: US-GLAXOSMITHKLINE-A0996680A

PATIENT
  Age: 73 Year
  Sex: Male

DRUGS (6)
  1. AVODART [Suspect]
     Indication: PROSTATOMEGALY
     Dosage: 1CAP Per day
     Route: 048
  2. TAMSULOSIN [Suspect]
     Indication: PROSTATOMEGALY
     Dosage: .4MG Per day
     Route: 048
  3. AMARYL [Concomitant]
  4. JANUMET [Concomitant]
  5. LOTREL [Concomitant]
  6. PAPAVERINE [Concomitant]

REACTIONS (2)
  - Muscular weakness [Not Recovered/Not Resolved]
  - Ill-defined disorder [Unknown]
